FAERS Safety Report 6332623-7 (Version None)
Quarter: 2009Q3

REPORT INFORMATION
  Report Type: 
  Country: None (occurrence: None)
  Receive Date: 20090828
  Receipt Date: 20090824
  Transmission Date: 20100115
  Serious: Yes (Other)
  Sender: FDA-Public Use
  Company Number: US-ROCHE-652008

PATIENT
  Age: 43 Year
  Sex: Female

DRUGS (3)
  1. KLONOPIN [Suspect]
     Indication: ANXIETY
     Route: 048
  2. LEXAPRO [Suspect]
     Indication: DEPRESSION
     Dosage: OTHER INDICATION: ANXIETY
     Route: 048
     Dates: start: 20090716, end: 20090725
  3. ALCOHOL [Suspect]
     Indication: DRUG USE FOR UNKNOWN INDICATION
     Route: 065

REACTIONS (3)
  - HOMICIDAL IDEATION [None]
  - LOSS OF CONSCIOUSNESS [None]
  - SUICIDAL IDEATION [None]
